FAERS Safety Report 21878864 (Version 10)
Quarter: 2023Q4

REPORT INFORMATION
  Report Type: Spontaneous
  Country: US (occurrence: US)
  Receive Date: 20230118
  Receipt Date: 20231218
  Transmission Date: 20240109
  Serious: Yes (Hospitalization)
  Sender: FDA-Public Use
  Company Number: US-PFIZER INC-PV202300007071

PATIENT
  Age: 78 Year
  Sex: Female

DRUGS (6)
  1. IBRANCE [Suspect]
     Active Substance: PALBOCICLIB
     Indication: Breast cancer female
     Dosage: TAKE 1 PILL BY MOUTH DAILY FOR 14 DAYS OF THEN 7 DAYS OFF
     Route: 048
     Dates: start: 202212
  2. AMOXICILLIN [Concomitant]
     Active Substance: AMOXICILLIN
     Dosage: UNK
  3. ASPIRIN [Concomitant]
     Active Substance: ASPIRIN
     Dosage: UNK
  4. ATENOLOL [Concomitant]
     Active Substance: ATENOLOL
     Dosage: UNK
  5. LETROZOLE [Concomitant]
     Active Substance: LETROZOLE
     Dosage: 2.5 MG, DAILY (TAKE 1 DAILY)
     Route: 048
  6. ZOMETA [Concomitant]
     Active Substance: ZOLEDRONIC ACID
     Dosage: UNK

REACTIONS (17)
  - Gastrointestinal infection [Unknown]
  - Bronchitis [Unknown]
  - Urinary tract infection [Unknown]
  - Off label use [Unknown]
  - Dysphonia [Unknown]
  - Malaise [Not Recovered/Not Resolved]
  - Illness [Unknown]
  - Bone disorder [Unknown]
  - Accident [Unknown]
  - Insomnia [Unknown]
  - Somnolence [Unknown]
  - Fall [Unknown]
  - Somnambulism [Recovering/Resolving]
  - White blood cell count decreased [Recovering/Resolving]
  - Decreased appetite [Not Recovered/Not Resolved]
  - Cystitis [Unknown]
  - Fatigue [Not Recovered/Not Resolved]

NARRATIVE: CASE EVENT DATE: 20230101
